FAERS Safety Report 10158182 (Version 1)
Quarter: 2014Q2

REPORT INFORMATION
  Report Type: Spontaneous
  Country: CO (occurrence: CO)
  Receive Date: 20140507
  Receipt Date: 20140507
  Transmission Date: 20141212
  Serious: Yes (Death, Hospitalization, Other)
  Sender: FDA-Public Use
  Company Number: PHHY2014CO054739

PATIENT
  Age: 19 Year
  Sex: Female

DRUGS (4)
  1. PREDNISONE [Suspect]
     Indication: POLYARTHRITIS
     Dosage: 25 MG, PER DAY
  2. PREDNISONE [Suspect]
     Indication: CUTANEOUS VASCULITIS
  3. RITUXIMAB [Suspect]
     Indication: POLYARTHRITIS
     Dosage: 1 G, (1 G INITIAL AND 1 G 2 WEEKS AFTER)
     Route: 041
  4. RITUXIMAB [Suspect]
     Indication: CUTANEOUS VASCULITIS

REACTIONS (15)
  - Death [Fatal]
  - Cough [Unknown]
  - Dyspnoea [Unknown]
  - Pyrexia [Unknown]
  - Malaise [Unknown]
  - Atrioventricular block [Unknown]
  - Tachycardia [Unknown]
  - Breath sounds abnormal [Unknown]
  - Cyanosis [Unknown]
  - Methaemoglobinaemia [Unknown]
  - Neurological decompensation [Unknown]
  - Pneumocystis jirovecii pneumonia [Unknown]
  - Cushingoid [Unknown]
  - Polyarthritis [Unknown]
  - Cutaneous vasculitis [Unknown]
